FAERS Safety Report 15219563 (Version 5)
Quarter: 2022Q1

REPORT INFORMATION
  Report Type: Spontaneous
  Country: FR (occurrence: FR)
  Receive Date: 20180731
  Receipt Date: 20220317
  Transmission Date: 20220423
  Serious: Yes (Death, Hospitalization, Other)
  Sender: FDA-Public Use
  Company Number: None

PATIENT
  Age: 56 Year
  Sex: Male
  Weight: 73 kg

DRUGS (17)
  1. AMOXICILLIN\CLAVULANIC ACID [Suspect]
     Active Substance: AMOXICILLIN\CLAVULANIC ACID
     Indication: Pneumonia aspiration
     Dosage: 3 DOSAGE FORM, 3 TIMES A DAY (3 DF, TID (1 G)
     Route: 048
     Dates: start: 20080622, end: 20080630
  2. AMOXICILLIN\CLAVULANIC ACID [Suspect]
     Active Substance: AMOXICILLIN\CLAVULANIC ACID
     Indication: Lung disorder
  3. AMOXICILLIN [Suspect]
     Active Substance: AMOXICILLIN
     Indication: Lung disorder
     Dosage: 1 GRAM, 3 TIMES A DAY (1 G, TID)
     Route: 065
     Dates: start: 20080622, end: 20080630
  4. ALPRAZOLAM [Suspect]
     Active Substance: ALPRAZOLAM
     Indication: Product used for unknown indication
     Dosage: 3 DOSAGE FORM, 3 TIMES A DAY
     Route: 048
     Dates: start: 20080718
  5. HYDROXYZINE [Suspect]
     Active Substance: HYDROXYZINE HYDROCHLORIDE
     Indication: Product used for unknown indication
     Dosage: 100 MILLIGRAM
     Route: 065
     Dates: start: 20080621
  6. ABILIFY [Suspect]
     Active Substance: ARIPIPRAZOLE
     Indication: Psychotic disorder
     Dosage: 10 MILLIGRAM, ONCE A DAY (10 MG, QD)
     Route: 048
     Dates: start: 20080715
  7. LOXAPINE [Suspect]
     Active Substance: LOXAPINE
     Indication: Psychotic disorder
     Dosage: 3 DOSAGE FORM, 3 TIMES A DAY (3 DF, TID (25 MG)
     Route: 065
     Dates: start: 20080703
  8. TROPATEPINE HYDROCHLORIDE [Suspect]
     Active Substance: TROPATEPINE HYDROCHLORIDE
     Indication: Psychotic disorder
     Dosage: 2 DOSAGE FORM, TWO TIMES A DAY (2 DF, BID (10 MG)
     Route: 048
     Dates: start: 20080621
  9. AMISULPRIDE [Suspect]
     Active Substance: AMISULPRIDE
     Indication: Psychotic disorder
     Dosage: 50 MILLIGRAM, ONCE A DAY
     Route: 048
     Dates: start: 20080621
  10. CYAMEMAZINE [Suspect]
     Active Substance: CYAMEMAZINE
     Indication: Psychotic disorder
     Dosage: 25 MILLIGRAM
     Route: 065
  11. CYAMEMAZINE [Suspect]
     Active Substance: CYAMEMAZINE
     Dosage: 2 DOSAGE FORM, TWO TIMES A DAY (2 DF, BID (50 MG)
     Route: 048
     Dates: start: 20080718
  12. XANAX [Suspect]
     Active Substance: ALPRAZOLAM
     Indication: Psychotic disorder
     Dosage: 3 DOSAGE FORM, 3 TIMES A DAY (3 DF, TID (0.25 MG)
     Route: 048
     Dates: start: 20080718
  13. EFFERALGAN [Concomitant]
     Active Substance: ACETAMINOPHEN
     Indication: Product used for unknown indication
     Dosage: 500 MG, UNK (500 MG 6 DAILY)
     Route: 048
     Dates: start: 20080622, end: 20080625
  14. KETOPROFEN [Concomitant]
     Active Substance: KETOPROFEN
     Indication: Product used for unknown indication
     Dosage: UNK
     Route: 065
     Dates: start: 20080622, end: 20080626
  15. ACETAMINOPHEN [Concomitant]
     Active Substance: ACETAMINOPHEN
     Indication: Product used for unknown indication
     Dosage: UNK
     Route: 065
  16. PHLOROGLUCINOL [Concomitant]
     Active Substance: PHLOROGLUCINOL
     Indication: Product used for unknown indication
     Dosage: UNK
     Route: 065
     Dates: start: 20080626, end: 2008
  17. ALBUTEROL SULFATE [Concomitant]
     Active Substance: ALBUTEROL SULFATE
     Indication: Product used for unknown indication
     Dosage: UNK
     Route: 065
     Dates: start: 20080629, end: 2008

REACTIONS (6)
  - Sepsis [Fatal]
  - Diarrhoea infectious [Fatal]
  - Enterocolitis [Fatal]
  - Acute kidney injury [Fatal]
  - Hyperleukocytosis [Fatal]
  - Leukocytosis [Fatal]

NARRATIVE: CASE EVENT DATE: 20080718
